FAERS Safety Report 8967046 (Version 1)
Quarter: 2012Q4

REPORT INFORMATION
  Report Type: 
  Country: JP (occurrence: JP)
  Receive Date: 20121217
  Receipt Date: 20121217
  Transmission Date: 20130627
  Serious: Yes (Other)
  Sender: FDA-Public Use
  Company Number: PHHY2012JP115459

PATIENT
  Age: 57 Year
  Sex: Male

DRUGS (1)
  1. VOLTAREN [Suspect]
     Dosage: 50 mg daily
     Route: 048
     Dates: start: 201006, end: 201006

REACTIONS (2)
  - Lung disorder [Unknown]
  - Drug eruption [Unknown]
